FAERS Safety Report 8109610-1 (Version None)
Quarter: 2012Q1

REPORT INFORMATION
  Report Type: 
  Country: None (occurrence: None)
  Receive Date: 20120202
  Receipt Date: 20120117
  Transmission Date: 20120608
  Serious: No
  Sender: FDA-Public Use
  Company Number: US-AMGEN-USASP2012003357

PATIENT
  Age: 13 Year
  Sex: Female

DRUGS (2)
  1. PREDNISONE TAB [Concomitant]
     Dosage: UNK
     Dates: end: 20111201
  2. ENBREL [Suspect]
     Indication: JUVENILE ARTHRITIS
     Dosage: 35 MG, QWK
     Dates: start: 20110801

REACTIONS (3)
  - RHINORRHOEA [None]
  - ACNE [None]
  - COUGH [None]
